FAERS Safety Report 20394204 (Version 1)
Quarter: 2022Q1

REPORT INFORMATION
  Report Type: Spontaneous
  Country: BE (occurrence: BE)
  Receive Date: 20220129
  Receipt Date: 20220129
  Transmission Date: 20220423
  Serious: Yes (Hospitalization, Other)
  Sender: FDA-Public Use
  Company Number: BE-Accord-205254

PATIENT
  Age: 54 Year
  Sex: Male

DRUGS (1)
  1. TEMOZOLOMIDE [Suspect]
     Active Substance: TEMOZOLOMIDE
     Indication: Glioblastoma
     Dosage: FOLLOWED BY 5 DAYS/28 (6 PLANNED CYCLES, 150 MG/M2 IN FIRST CYCLE, 200 MG/M2 IN SUBSEQUENT CYCLES)
     Route: 048
     Dates: start: 20170117

REACTIONS (3)
  - Diabetes insipidus [Recovered/Resolved]
  - Malignant neoplasm progression [Unknown]
  - Glioblastoma [Unknown]

NARRATIVE: CASE EVENT DATE: 20170201
